FAERS Safety Report 21447810 (Version 2)
Quarter: 2022Q4

REPORT INFORMATION
  Report Type: Spontaneous
  Country: JP (occurrence: JP)
  Receive Date: 20221012
  Receipt Date: 20221212
  Transmission Date: 20230113
  Serious: Yes (Hospitalization)
  Sender: FDA-Public Use
  Company Number: JP-BAUSCH-BL-2022-023064

PATIENT
  Age: 53 Year
  Sex: Male

DRUGS (5)
  1. DEXAMETHASONE [Suspect]
     Active Substance: DEXAMETHASONE
     Indication: Lymphadenopathy
     Dosage: HIGH DOSE
     Route: 065
  2. BORTEZOMIB [Concomitant]
     Active Substance: BORTEZOMIB
     Indication: Angioimmunoblastic T-cell lymphoma stage III
     Dosage: STARTED ON THE FOURTH HOSPITAL DAY AND WAS TEMPORARILY DISCONTINUED
     Route: 058
  3. BORTEZOMIB [Concomitant]
     Active Substance: BORTEZOMIB
     Dosage: 5 DOSES
     Route: 058
  4. PREDNISOLONE [Concomitant]
     Active Substance: PREDNISOLONE
     Indication: Lymphadenopathy
  5. PREDNISOLONE [Concomitant]
     Active Substance: PREDNISOLONE
     Dosage: UP TO 80 MG

REACTIONS (2)
  - Acute myocardial infarction [Recovered/Resolved]
  - Hypercoagulation [Recovered/Resolved]
